FAERS Safety Report 14309904 (Version 1)
Quarter: 2017Q4

REPORT INFORMATION
  Report Type: Spontaneous
  Country: US (occurrence: US)
  Receive Date: 20171220
  Receipt Date: 20171220
  Transmission Date: 20180321
  Serious: Yes (Hospitalization, Disabling)
  Sender: FDA-Public Use
  Company Number: None

PATIENT
  Age: 63 Year
  Sex: Male
  Weight: 119.3 kg

DRUGS (1)
  1. TRANEXAMIC ACID. [Suspect]
     Active Substance: TRANEXAMIC ACID
     Indication: HAEMORRHAGE
     Dosage: 1000MG TWICE DURINGSURG IV
     Route: 042
     Dates: start: 20171110

REACTIONS (5)
  - Facial paralysis [None]
  - Post procedural complication [None]
  - Movement disorder [None]
  - Hypotension [None]
  - Unresponsive to stimuli [None]

NARRATIVE: CASE EVENT DATE: 20171110
